FAERS Safety Report 9611075 (Version 1)
Quarter: 2013Q4

REPORT INFORMATION
  Report Type: Spontaneous
  Country: GB (occurrence: GB)
  Receive Date: 20131009
  Receipt Date: 20131009
  Transmission Date: 20140711
  Serious: Yes (Other)
  Sender: FDA-Public Use
  Company Number: PHFR2013GB005589

PATIENT
  Sex: Female

DRUGS (8)
  1. CLOMIPRAMINE [Suspect]
     Indication: DEPRESSION
     Dosage: UNK UKN, UNK
  2. LYRICA [Concomitant]
     Dosage: UNK UKN, UNK
  3. WARFARIN [Concomitant]
     Dosage: UNK UKN, UNK
  4. ASPIRIN [Concomitant]
     Dosage: UNK UKN, UNK
  5. CANDESARTAN [Concomitant]
     Dosage: UNK UKN, UNK
  6. FUROSEMIDE [Concomitant]
     Dosage: UNK UKN, UNK
  7. EPLERENONA [Concomitant]
     Dosage: UNK UKN, UNK
  8. GLICLAZIDE [Concomitant]
     Dosage: UNK UKN, UNK

REACTIONS (4)
  - Circulatory collapse [Unknown]
  - Ventricular tachycardia [Unknown]
  - Blood potassium decreased [Unknown]
  - Feeling abnormal [Unknown]
